FAERS Safety Report 19981716 (Version 2)
Quarter: 2021Q4

REPORT INFORMATION
  Report Type: Spontaneous
  Country: US (occurrence: US)
  Receive Date: 20211022
  Receipt Date: 20211125
  Transmission Date: 20220303
  Serious: No
  Sender: FDA-Public Use
  Company Number: US-GLAXOSMITHKLINE-US2021AMR212237

PATIENT
  Sex: Female

DRUGS (2)
  1. ZEJULA [Suspect]
     Active Substance: NIRAPARIB
     Indication: Ovarian cancer
     Dosage: 100 MG, QD
     Dates: start: 20180312
  2. ZEJULA [Suspect]
     Active Substance: NIRAPARIB
     Indication: Colon cancer
     Dosage: 100 MG

REACTIONS (3)
  - Heart rate increased [Unknown]
  - Off label use [Unknown]
  - Product dose omission issue [Unknown]
